FAERS Safety Report 24938428 (Version 1)
Quarter: 2025Q1

REPORT INFORMATION
  Report Type: Spontaneous
  Country: SE (occurrence: SE)
  Receive Date: 20250206
  Receipt Date: 20250206
  Transmission Date: 20250409
  Serious: Yes (Hospitalization)
  Sender: JUBILANT
  Company Number: SE-JUBILANT CADISTA PHARMACEUTICALS-2025JUB00008

PATIENT
  Age: 43 Day

DRUGS (2)
  1. LAMOTRIGINE [Suspect]
     Active Substance: LAMOTRIGINE
  2. LAMOTRIGINE [Suspect]
     Active Substance: LAMOTRIGINE

REACTIONS (4)
  - Fatigue [Recovered/Resolved]
  - Hypotension [Recovered/Resolved]
  - Hypotonia neonatal [Recovered/Resolved]
  - Exposure via breast milk [Unknown]
